FAERS Safety Report 25529244 (Version 1)
Quarter: 2025Q3

REPORT INFORMATION
  Report Type: Spontaneous
  Country: US (occurrence: US)
  Receive Date: 20250708
  Receipt Date: 20250708
  Transmission Date: 20251021
  Serious: Yes (Hospitalization)
  Sender: NORDIC PHARMA
  Company Number: US-NORDIC PHARMA, INC-2025US003502

PATIENT

DRUGS (1)
  1. NEOSTIGMINE METHYLSULFATE [Suspect]
     Active Substance: NEOSTIGMINE METHYLSULFATE
     Indication: Anaesthesia reversal

REACTIONS (1)
  - Drug resistance [Unknown]
